FAERS Safety Report 18312620 (Version 4)
Quarter: 2021Q1

REPORT INFORMATION
  Report Type: Spontaneous
  Country: JP (occurrence: JP)
  Receive Date: 20200925
  Receipt Date: 20210312
  Transmission Date: 20210419
  Serious: Yes (Death, Other)
  Sender: FDA-Public Use
  Company Number: JP-ASTRAZENECA-2020SF23188

PATIENT
  Age: 27243 Day
  Sex: Male

DRUGS (24)
  1. OXYCONTIN [Concomitant]
     Active Substance: OXYCODONE HYDROCHLORIDE
     Indication: METASTASES TO LYMPH NODES
     Route: 048
     Dates: end: 20200918
  2. NAIXAN [Concomitant]
     Active Substance: NAPROXEN SODIUM
     Indication: TUMOUR ASSOCIATED FEVER
     Route: 048
     Dates: start: 20200321, end: 20200918
  3. SODIUM RABEPRAZOLE [Concomitant]
     Active Substance: RABEPRAZOLE SODIUM
     Indication: PRODUCT USED FOR UNKNOWN INDICATION
     Route: 048
     Dates: end: 20200918
  4. OXINORM [Concomitant]
     Indication: PROSTATE CANCER
     Dosage: 5 TO 10 MG/DAY, 2 TO 4 TIMES
     Route: 048
     Dates: end: 20200918
  5. TRANCOLON [Interacting]
     Active Substance: MEPENZOLATE BROMIDE
     Indication: ABDOMINAL DISCOMFORT
     Route: 048
     Dates: end: 20200918
  6. DECADRON [Concomitant]
     Active Substance: DEXAMETHASONE
     Indication: PROSTATE CANCER
     Dosage: 0.5 MG, TWICE DAILY
     Route: 048
     Dates: start: 201909, end: 20200918
  7. NAUZELIN [Concomitant]
     Active Substance: DOMPERIDONE
     Indication: PROPHYLAXIS
     Route: 048
     Dates: start: 20200829, end: 20200918
  8. STROCAIN [Concomitant]
     Active Substance: OXETHAZAINE
     Indication: ABDOMINAL DISCOMFORT
     Route: 065
     Dates: end: 20200918
  9. STROCAIN [Concomitant]
     Active Substance: OXETHAZAINE
     Indication: ABDOMINAL DISTENSION
     Route: 065
     Dates: end: 20200918
  10. TRANCOLON [Interacting]
     Active Substance: MEPENZOLATE BROMIDE
     Indication: ABDOMINAL DISTENSION
     Route: 048
     Dates: end: 20200918
  11. MYSLEE [Suspect]
     Active Substance: ZOLPIDEM TARTRATE
     Indication: INSOMNIA
     Dosage: 5 MG, ONCE DAILY, AT BEDTIME
     Route: 048
     Dates: start: 20200910, end: 20200910
  12. OXYCONTIN [Concomitant]
     Active Substance: OXYCODONE HYDROCHLORIDE
     Indication: PROSTATE CANCER
     Route: 048
     Dates: end: 20200918
  13. LOXONIN [Concomitant]
     Active Substance: LOXOPROFEN SODIUM
     Indication: METASTASES TO BONE
     Dosage: 60 MG, THRICE DAILY, AS NEEDED
     Route: 048
     Dates: end: 20200918
  14. FEBURIC [Concomitant]
     Active Substance: FEBUXOSTAT
     Indication: PRODUCT USED FOR UNKNOWN INDICATION
     Route: 048
     Dates: end: 20200918
  15. SEROQUEL [Suspect]
     Active Substance: QUETIAPINE FUMARATE
     Indication: PRODUCT USED FOR UNKNOWN INDICATION
     Dosage: 25 MG, TWICE DAILY, MORNING AND EVENING
     Route: 048
     Dates: start: 20200910, end: 20200918
  16. LOXONIN [Concomitant]
     Active Substance: LOXOPROFEN SODIUM
     Indication: METASTASES TO LYMPH NODES
     Dosage: 60 MG, THRICE DAILY, AS NEEDED
     Route: 048
     Dates: end: 20200918
  17. MECOBALAMIN [Concomitant]
     Active Substance: METHYLCOBALAMIN
     Indication: PRODUCT USED FOR UNKNOWN INDICATION
     Route: 048
     Dates: end: 20200918
  18. DECADRON [Concomitant]
     Active Substance: DEXAMETHASONE
     Indication: METASTASES TO BONE
     Dosage: 0.5 MG, TWICE DAILY
     Route: 048
     Dates: start: 201909, end: 20200918
  19. DECADRON [Concomitant]
     Active Substance: DEXAMETHASONE
     Indication: METASTASES TO LYMPH NODES
     Dosage: 0.5 MG, TWICE DAILY
     Route: 048
     Dates: start: 201909, end: 20200918
  20. OXINORM [Concomitant]
     Indication: METASTASES TO BONE
     Dosage: 5 TO 10 MG/DAY, 2 TO 4 TIMES
     Route: 048
     Dates: end: 20200918
  21. OXINORM [Concomitant]
     Indication: METASTASES TO LYMPH NODES
     Dosage: 5 TO 10 MG/DAY, 2 TO 4 TIMES
     Route: 048
     Dates: end: 20200918
  22. PURSENNIDE [Concomitant]
     Indication: CONSTIPATION
     Route: 065
     Dates: end: 20200918
  23. OXYCONTIN [Concomitant]
     Active Substance: OXYCODONE HYDROCHLORIDE
     Indication: METASTASES TO BONE
     Route: 048
     Dates: end: 20200918
  24. LOXONIN [Concomitant]
     Active Substance: LOXOPROFEN SODIUM
     Indication: PROSTATE CANCER
     Dosage: 60 MG, THRICE DAILY, AS NEEDED
     Route: 048
     Dates: end: 20200918

REACTIONS (2)
  - Urinary retention [Unknown]
  - Drug interaction [Unknown]

NARRATIVE: CASE EVENT DATE: 20200918
